FAERS Safety Report 5174817-2 (Version None)
Quarter: 2006Q4

REPORT INFORMATION
  Report Type: 
  Country: None (occurrence: None)
  Receive Date: 20061206
  Receipt Date: 20061124
  Transmission Date: 20070319
  Serious: Yes (Hospitalization, Congenital Anomaly, Other)
  Sender: FDA-Public Use
  Company Number: 2006104189

PATIENT
  Sex: Male

DRUGS (2)
  1. NEURONTIN [Suspect]
     Indication: EPILEPSY
     Dosage: ORAL
     Route: 048
  2. TEGRETOL [Concomitant]

REACTIONS (12)
  - ABDOMINAL HERNIA [None]
  - ANGIOPATHY [None]
  - ASTHMA [None]
  - CARDIAC DISORDER [None]
  - CARDIAC MURMUR [None]
  - CRYPTORCHISM [None]
  - DRUG EXPOSURE DURING PREGNANCY [None]
  - DYSPNOEA [None]
  - HEART VALVE INSUFFICIENCY [None]
  - NEONATAL DISORDER [None]
  - NERVOUS SYSTEM DISORDER [None]
  - PILONIDAL CYST CONGENITAL [None]
